FAERS Safety Report 5245540-0 (Version None)
Quarter: 2007Q1

REPORT INFORMATION
  Report Type: 
  Country: None (occurrence: None)
  Receive Date: 20070216
  Receipt Date: 20070205
  Transmission Date: 20070707
  Serious: Yes (Hospitalization, Other)
  Sender: FDA-Public Use
  Company Number: GXKR2007US01378

PATIENT
  Age: 52 Year
  Sex: Female

DRUGS (1)
  1. PENICILLIN G [Suspect]
     Indication: COUGH
     Dosage: ORAL
     Route: 048

REACTIONS (6)
  - DERMATITIS BULLOUS [None]
  - DRUG RESISTANCE [None]
  - ERYTHEMA MULTIFORME [None]
  - ORAL SOFT TISSUE DISORDER [None]
  - PEMPHIGOID [None]
  - POST INFLAMMATORY PIGMENTATION CHANGE [None]
